FAERS Safety Report 4730117-3 (Version None)
Quarter: 2005Q3

REPORT INFORMATION
  Report Type: 
  Country: None (occurrence: None)
  Receive Date: 20050728
  Receipt Date: 20050721
  Transmission Date: 20060218
  Serious: Yes (Death, Other)
  Sender: FDA-Public Use
  Company Number: 163-20785-05030093

PATIENT
  Age: 84 Year
  Sex: Female

DRUGS (8)
  1. THALOMID [Suspect]
     Indication: MULTIPLE MYELOMA
     Dosage: 50 MG, QD, ORAL
     Route: 048
     Dates: start: 20050121, end: 20050217
  2. THALOMID [Suspect]
     Indication: MULTIPLE MYELOMA
     Dosage: 50 MG, QD, ORAL
     Route: 048
     Dates: start: 20050218, end: 20050303
  3. PERCOCET [Concomitant]
  4. SYNTHROID [Concomitant]
  5. FOSAMAX [Concomitant]
  6. OSCAL (CALCIUM CARBONATE) [Concomitant]
  7. STOOL SOFTENER (DOCUSATE SODIUM) [Concomitant]
  8. MULTIVITAMIN [Concomitant]

REACTIONS (3)
  - DISEASE PROGRESSION [None]
  - GENERAL PHYSICAL HEALTH DETERIORATION [None]
  - RESPIRATORY FAILURE [None]
